FAERS Safety Report 14147631 (Version 1)
Quarter: 2017Q4

REPORT INFORMATION
  Report Type: Spontaneous
  Country: US (occurrence: US)
  Receive Date: 20171031
  Receipt Date: 20171031
  Transmission Date: 20180321
  Serious: No
  Sender: FDA-Public Use
  Company Number: US-ROMARKLABS-2016-US-000069

PATIENT
  Age: 61 Year
  Sex: Female

DRUGS (4)
  1. AMLODIPINE [Concomitant]
     Active Substance: AMLODIPINE BESYLATE
     Indication: PRODUCT USED FOR UNKNOWN INDICATION
  2. LIPITOR [Concomitant]
     Active Substance: ATORVASTATIN CALCIUM
     Indication: PRODUCT USED FOR UNKNOWN INDICATION
  3. ALINIA [Suspect]
     Active Substance: NITAZOXANIDE
     Indication: DIARRHOEA
     Dosage: 1 TABLET TWICE PER DAY
     Route: 048
     Dates: start: 20160831, end: 20160901
  4. DIOVAN [Concomitant]
     Active Substance: VALSARTAN
     Indication: PRODUCT USED FOR UNKNOWN INDICATION

REACTIONS (4)
  - Diarrhoea [Recovered/Resolved]
  - Abdominal pain [Recovered/Resolved]
  - Decreased appetite [Not Recovered/Not Resolved]
  - Chromaturia [Recovered/Resolved]

NARRATIVE: CASE EVENT DATE: 20160831
